FAERS Safety Report 9777691 (Version 1)
Quarter: 2013Q4

REPORT INFORMATION
  Report Type: Spontaneous
  Country: US (occurrence: US)
  Receive Date: 20131223
  Receipt Date: 20131223
  Transmission Date: 20140711
  Serious: No
  Sender: FDA-Public Use
  Company Number: 2012SP001288

PATIENT
  Age: 53 Year
  Sex: Male

DRUGS (2)
  1. VANCOMYCIN [Suspect]
     Route: 048
     Dates: start: 20120602
  2. METOPROLOL [Concomitant]
     Indication: HYPERTENSION

REACTIONS (1)
  - Faeces discoloured [Not Recovered/Not Resolved]
